FAERS Safety Report 21971199 (Version 4)
Quarter: 2023Q1

REPORT INFORMATION
  Report Type: Spontaneous
  Country: AM (occurrence: None)
  Receive Date: 20230209
  Receipt Date: 20230221
  Transmission Date: 20230418
  Serious: Yes (Other)
  Sender: FDA-Public Use
  Company Number: AM-ROCHE-3281109

PATIENT
  Age: 63 Year
  Sex: Female

DRUGS (4)
  1. HERCEPTIN [Suspect]
     Active Substance: TRASTUZUMAB
     Indication: Breast cancer
     Dosage: 600MG/5ML, 1Q21D) FOR 17 CYCLES.
     Route: 058
     Dates: start: 202109
  2. INVESTIGATIONAL BIOSIMILARS [Concomitant]
     Active Substance: INVESTIGATIONAL BIOSIMILARS
     Dosage: 2MG/KG/WK
     Route: 042
  3. DOCETAXEL [Concomitant]
     Active Substance: DOCETAXEL
     Dosage: 35MG/M2/W FOR 4WEEK
  4. ANTHRACYCLINES (UNK INGREDIENTS) [Concomitant]
     Dosage: 17 CYCLES

REACTIONS (1)
  - Metastases to liver [Unknown]

NARRATIVE: CASE EVENT DATE: 20220901
